FAERS Safety Report 9834330 (Version 2)
Quarter: 2014Q1

REPORT INFORMATION
  Report Type: Spontaneous
  Country: BR (occurrence: BR)
  Receive Date: 20140122
  Receipt Date: 20140326
  Transmission Date: 20141002
  Serious: Yes (Disabling)
  Sender: FDA-Public Use
  Company Number: BR-UCBSA-110016

PATIENT
  Age: 54 Year
  Sex: Female
  Weight: 67 kg

DRUGS (10)
  1. CIMZIA [Suspect]
     Indication: RHEUMATOID ARTHRITIS
     Dosage: 200MG/ML, 2 INJECTIONS EVERY 2 WEEKS
     Route: 058
     Dates: start: 20131223
  2. AZUKON [Concomitant]
     Indication: DIABETES MELLITUS
     Dosage: UNKNOWN DOSE
     Route: 048
  3. LOSARTAN [Concomitant]
     Indication: HYPERTENSION
     Dosage: UNKNOWN DOSE
     Route: 048
  4. LEXOTAN [Concomitant]
     Indication: SLEEP DISORDER
     Dosage: UNKNOWN DOSE
     Route: 048
  5. MELOXICAM [Concomitant]
     Indication: PAIN
     Dosage: UNKNOWN DOSE
     Route: 048
  6. ACETAMINOPHEN [Concomitant]
     Indication: PAIN
     Dosage: UNKNOWN DOSE
     Route: 048
  7. AMYTRIL [Concomitant]
     Indication: PAIN
     Dosage: UNKNOWN DOSE
     Route: 048
  8. DEFLAZACORT [Concomitant]
     Indication: RHEUMATOID ARTHRITIS
     Dosage: UNKNOWN DOSE
     Route: 048
     Dates: start: 20131223
  9. TANDRILAX [Concomitant]
     Indication: RHEUMATOID ARTHRITIS
     Dosage: UNKNOWN DOSE
     Dates: end: 20131223
  10. PREDNISONE [Concomitant]
     Indication: RHEUMATOID ARTHRITIS
     Dosage: UNKNOWN DOSE
     Dates: end: 20131223

REACTIONS (4)
  - Pain [Recovered/Resolved]
  - Joint swelling [Not Recovered/Not Resolved]
  - Weight decreased [Not Recovered/Not Resolved]
  - Arthralgia [Unknown]
